FAERS Safety Report 9771156 (Version 2)
Quarter: 2014Q1

REPORT INFORMATION
  Report Type: Spontaneous
  Country: DK (occurrence: AU)
  Receive Date: 20131218
  Receipt Date: 20140206
  Transmission Date: 20141002
  Serious: Yes (Hospitalization)
  Sender: FDA-Public Use
  Company Number: AU-FRI-1000052319

PATIENT
  Sex: Male

DRUGS (2)
  1. ESCITALOPRAM [Suspect]
  2. QUETIAPINE [Suspect]

REACTIONS (1)
  - Partial seizures [Unknown]
